FAERS Safety Report 17437002 (Version 2)
Quarter: 2020Q1

REPORT INFORMATION
  Report Type: Spontaneous
  Country: FR (occurrence: FR)
  Receive Date: 20200219
  Receipt Date: 20200225
  Transmission Date: 20200409
  Serious: Yes (Hospitalization, Disabling, Other)
  Sender: FDA-Public Use
  Company Number: FR-JNJFOC-20191241681

PATIENT
  Age: 88 Year
  Sex: Female

DRUGS (3)
  1. RIVAROXABAN [Suspect]
     Active Substance: RIVAROXABAN
     Indication: ATRIAL FIBRILLATION
     Route: 048
     Dates: start: 20160701
  2. RIVAROXABAN [Suspect]
     Active Substance: RIVAROXABAN
     Indication: VENTRICULAR FIBRILLATION
  3. HEMIGOXINE [Concomitant]
     Active Substance: DIGOXIN
     Dosage: UNK

REACTIONS (8)
  - Infected skin ulcer [Not Recovered/Not Resolved]
  - Petechiae [Recovered/Resolved]
  - Product use in unapproved indication [Unknown]
  - Haematoma [Recovered/Resolved]
  - Spontaneous haemorrhage [Recovered/Resolved]
  - Muscle haemorrhage [Recovered/Resolved]
  - Haemorrhage subcutaneous [Recovered/Resolved]
  - Erysipelas [Recovered/Resolved]

NARRATIVE: CASE EVENT DATE: 20191101
